FAERS Safety Report 15632514 (Version 1)
Quarter: 2018Q4

REPORT INFORMATION
  Report Type: Spontaneous
  Country: US (occurrence: US)
  Receive Date: 20181119
  Receipt Date: 20181119
  Transmission Date: 20190205
  Serious: Yes (Other)
  Sender: FDA-Public Use
  Company Number: None

PATIENT
  Age: 41 Year
  Sex: Female
  Weight: 96.75 kg

DRUGS (6)
  1. DULOXETINE. [Suspect]
     Active Substance: DULOXETINE
     Indication: FATIGUE
     Route: 048
  2. VITAMIN D [Concomitant]
     Active Substance: CHOLECALCIFEROL
  3. DULOXETINE. [Suspect]
     Active Substance: DULOXETINE
     Indication: DEPRESSION
     Route: 048
  4. LEVOTHYROXINE. [Concomitant]
     Active Substance: LEVOTHYROXINE
  5. MELOXICAM. [Concomitant]
     Active Substance: MELOXICAM
  6. VITAMIN C [Concomitant]
     Active Substance: ASCORBIC ACID

REACTIONS (10)
  - Dehydration [None]
  - Postural orthostatic tachycardia syndrome [None]
  - Vomiting [None]
  - Sleep disorder [None]
  - Vertigo [None]
  - Withdrawal syndrome [None]
  - Headache [None]
  - Condition aggravated [None]
  - Sleep terror [None]
  - Nausea [None]

NARRATIVE: CASE EVENT DATE: 20181005
